FAERS Safety Report 6994643-9 (Version None)
Quarter: 2010Q3

REPORT INFORMATION
  Report Type: 
  Country: None (occurrence: None)
  Receive Date: 20100915
  Receipt Date: 20100915
  Transmission Date: 20110219
  Serious: Yes (Disabling)
  Sender: FDA-Public Use
  Company Number: None

PATIENT
  Sex: Male
  Weight: 99.7913 kg

DRUGS (4)
  1. TEGRETOL-XR [Suspect]
     Indication: TRIGEMINAL NEURALGIA
     Dosage: 200 MG DAILY PO
     Route: 048
     Dates: start: 20100730, end: 20100903
  2. WARFARIN SODIUM [Suspect]
     Indication: THROMBOPHLEBITIS
     Dosage: 7.5 MG OR 5 MG 5 DAYS/WK; 2D/WK PO
     Route: 048
  3. FUROSEMIDE [Concomitant]
  4. WARFARIN [Concomitant]

REACTIONS (4)
  - CONDITION AGGRAVATED [None]
  - THROMBOPHLEBITIS [None]
  - THROMBOPHLEBITIS SUPERFICIAL [None]
  - TRIGEMINAL NEURALGIA [None]
